FAERS Safety Report 16895805 (Version 3)
Quarter: 2019Q4

REPORT INFORMATION
  Report Type: Spontaneous
  Country: US (occurrence: US)
  Receive Date: 20191008
  Receipt Date: 20191202
  Transmission Date: 20200122
  Serious: No
  Sender: FDA-Public Use
  Company Number: US-ACTELION-A-NJ2019-196455

PATIENT
  Age: 27 Year
  Sex: Female
  Weight: 43.08 kg

DRUGS (5)
  1. TYVASO [Suspect]
     Active Substance: TREPROSTINIL
     Indication: PRODUCT USED FOR UNKNOWN INDICATION
     Route: 065
  2. TADALAFIL. [Concomitant]
     Active Substance: TADALAFIL
  3. TYVASO [Suspect]
     Active Substance: TREPROSTINIL
     Dosage: 2 BREATHS
     Route: 065
  4. TYVASO [Suspect]
     Active Substance: TREPROSTINIL
     Dosage: 3 BREATHS
     Route: 065
     Dates: start: 20191002
  5. OPSUMIT [Suspect]
     Active Substance: MACITENTAN
     Indication: PULMONARY ARTERIAL HYPERTENSION
     Dosage: 10 MG, QD
     Route: 048

REACTIONS (5)
  - Headache [Recovering/Resolving]
  - Diarrhoea [Unknown]
  - Adverse event [Unknown]
  - Vomiting [Recovering/Resolving]
  - Influenza like illness [Unknown]

NARRATIVE: CASE EVENT DATE: 20191002
